FAERS Safety Report 9439003 (Version 2)
Quarter: 2013Q3

REPORT INFORMATION
  Report Type: Spontaneous
  Country: AT (occurrence: AT)
  Receive Date: 20130802
  Receipt Date: 20130819
  Transmission Date: 20140515
  Serious: Yes (Hospitalization, Other)
  Sender: FDA-Public Use
  Company Number: AT-PFIZER INC-2013225403

PATIENT
  Age: 81 Year
  Sex: Female
  Weight: 80 kg

DRUGS (9)
  1. RAMIPRIL [Suspect]
     Indication: HYPERTENSION
     Dosage: 10 MG, DAILY
     Route: 048
     Dates: end: 20130704
  2. RAMIPRIL [Suspect]
     Indication: CARDIAC FAILURE
     Dosage: UNK
     Route: 048
     Dates: end: 20130706
  3. RAMIPRIL [Suspect]
     Dosage: UNK
     Dates: end: 20130709
  4. CRESTOR [Suspect]
     Indication: ACUTE CORONARY SYNDROME
     Dosage: 40 MG, DAILY
     Route: 048
     Dates: start: 20130528, end: 20130704
  5. AMLODIPINE BESILATE [Concomitant]
     Indication: HYPERTENSION
     Dosage: 5 MG, DAILY
     Route: 065
     Dates: end: 20130704
  6. BRILIQUE [Concomitant]
     Indication: ACUTE CORONARY SYNDROME
     Dosage: UNK
     Dates: start: 20130528
  7. NEBIVOLOL HYDROCHLORIDE [Concomitant]
     Dosage: UNK
  8. PANTOLOC [Concomitant]
     Dosage: UNK
  9. THROMBO ASS [Concomitant]
     Dosage: UNK

REACTIONS (2)
  - Rhabdomyolysis [Recovered/Resolved]
  - Renal cyst [Unknown]
